FAERS Safety Report 11856099 (Version 1)
Quarter: 2015Q4

REPORT INFORMATION
  Report Type: Report from Study
  Country: CA (occurrence: CA)
  Receive Date: 20151221
  Receipt Date: 20151221
  Transmission Date: 20160305
  Serious: Yes (Life-Threatening, Hospitalization, Other)
  Sender: FDA-Public Use
  Company Number: PHHY2015CA146579

PATIENT
  Age: 44 Year
  Sex: Male

DRUGS (1)
  1. CLOZARIL [Suspect]
     Active Substance: CLOZAPINE
     Indication: SCHIZOPHRENIA
     Dosage: 200 MG
     Route: 048
     Dates: start: 20121030, end: 20151211

REACTIONS (6)
  - Sepsis [Unknown]
  - Lung infection [Unknown]
  - Constipation [Unknown]
  - Pneumonia aspiration [Unknown]
  - Pneumothorax [Unknown]
  - Ileus [Unknown]

NARRATIVE: CASE EVENT DATE: 20151106
